FAERS Safety Report 15469881 (Version 2)
Quarter: 2018Q4

REPORT INFORMATION
  Report Type: Spontaneous
  Country: TR (occurrence: TR)
  Receive Date: 20181005
  Receipt Date: 20181009
  Transmission Date: 20190205
  Serious: Yes (Other)
  Sender: FDA-Public Use
  Company Number: PHHY2018TR103690

PATIENT
  Age: 18 Year
  Sex: Male

DRUGS (4)
  1. TRILEPTAL [Suspect]
     Active Substance: OXCARBAZEPINE
     Indication: EPILEPSY
     Dosage: UNK
     Route: 048
  2. TRILEPTAL [Suspect]
     Active Substance: OXCARBAZEPINE
     Indication: EPILEPSY
     Dosage: 600 MG, UNK (1/2 TABLET EACH MORNING AND 1/2 TABLET EACH MORNING)
     Route: 048
     Dates: start: 20180922, end: 20180924
  3. TRILEPTAL [Suspect]
     Active Substance: OXCARBAZEPINE
     Dosage: 600 MG, QD (1 TABLET EACH MORNING AND 1 TABLET EACH MORNING)
     Route: 048
     Dates: start: 20180928
  4. TRILEPTAL [Suspect]
     Active Substance: OXCARBAZEPINE
     Dosage: 600 MG, QD (ONCE IN MORNING)
     Route: 048
     Dates: start: 20180925, end: 20180927

REACTIONS (3)
  - Seizure [Unknown]
  - Loss of consciousness [Unknown]
  - Blood pressure fluctuation [Unknown]
